FAERS Safety Report 13564647 (Version 2)
Quarter: 2017Q2

REPORT INFORMATION
  Report Type: Report from Study
  Country: US (occurrence: US)
  Receive Date: 20170519
  Receipt Date: 20170523
  Transmission Date: 20170830
  Serious: No
  Sender: FDA-Public Use
  Company Number: US-ASTRAZENECA-2017SE51424

PATIENT
  Age: 70 Year
  Sex: Female
  Weight: 90.7 kg

DRUGS (3)
  1. SYMBICORT [Suspect]
     Active Substance: BUDESONIDE\FORMOTEROL FUMARATE DIHYDRATE
     Indication: CHRONIC OBSTRUCTIVE PULMONARY DISEASE
     Dosage: ONE PUFF TWO TIMES A DAY
     Route: 055
     Dates: start: 201612, end: 201701
  2. OXYGEN. [Concomitant]
     Active Substance: OXYGEN
     Dosage: 2.0L CONTINUOUSLY
     Route: 055
     Dates: start: 201612
  3. OXYGEN. [Concomitant]
     Active Substance: OXYGEN
     Dosage: 4.0L CONTINUOUSLY
     Route: 055
     Dates: start: 201612

REACTIONS (6)
  - Confusional state [Unknown]
  - Feeling abnormal [Unknown]
  - Dyspnoea [Unknown]
  - Gait disturbance [Unknown]
  - Therapy cessation [Unknown]
  - Incorrect dose administered [Unknown]

NARRATIVE: CASE EVENT DATE: 2017
